FAERS Safety Report 6825203-8 (Version None)
Quarter: 2010Q3

REPORT INFORMATION
  Report Type: 
  Country: None (occurrence: None)
  Receive Date: 20100708
  Receipt Date: 20061215
  Transmission Date: 20110219
  Serious: Yes (Hospitalization, Other)
  Sender: FDA-Public Use
  Company Number: US-PFIZER INC-2006154833

PATIENT
  Sex: Male
  Weight: 63.05 kg

DRUGS (5)
  1. CHANTIX [Suspect]
     Indication: SMOKING CESSATION THERAPY
     Dates: start: 20061031
  2. NAPROXEN [Concomitant]
     Indication: ARTHRITIS
  3. ANTIHYPERTENSIVES [Concomitant]
  4. MULTI-VITAMINS [Concomitant]
  5. ALL OTHER THERAPEUTIC PRODUCTS [Concomitant]
     Indication: HIATUS HERNIA

REACTIONS (1)
  - DYSPNOEA [None]
